FAERS Safety Report 7324048-2 (Version None)
Quarter: 2011Q1

REPORT INFORMATION
  Report Type: 
  Country: None (occurrence: None)
  Receive Date: 20110301
  Receipt Date: 20110224
  Transmission Date: 20110831
  Serious: Yes (Other)
  Sender: FDA-Public Use
  Company Number: US-ABBOTT-11P-163-0707830-00

PATIENT
  Sex: Male
  Weight: 83.082 kg

DRUGS (2)
  1. HUMIRA [Suspect]
     Indication: PSORIATIC ARTHROPATHY
     Dates: start: 20090101, end: 20090101
  2. HUMIRA [Suspect]
     Dates: start: 20110101

REACTIONS (7)
  - OPEN WOUND [None]
  - LOCALISED INFECTION [None]
  - ABASIA [None]
  - MOBILITY DECREASED [None]
  - BASAL CELL CARCINOMA [None]
  - BACK PAIN [None]
  - WOUND INFECTION STAPHYLOCOCCAL [None]
